FAERS Safety Report 4513026-4 (Version None)
Quarter: 2004Q4

REPORT INFORMATION
  Report Type: 
  Country: None (occurrence: None)
  Receive Date: 20041124
  Receipt Date: 20041115
  Transmission Date: 20050328
  Serious: Yes (Hospitalization)
  Sender: FDA-Public Use
  Company Number: 210485

PATIENT
  Age: 59 Year
  Sex: Male
  Weight: 103.2 kg

DRUGS (10)
  1. AVASTIN [Suspect]
     Indication: COLON CANCER
     Dosage: 500 MG,Q14D, INTRAVENOUS
     Route: 042
     Dates: start: 20040625
  2. IRINOTECAN HCL [Concomitant]
  3. LEUCOVORIN CALCIUM [Concomitant]
  4. FLUOROURACIL [Concomitant]
  5. ATENOLOL [Concomitant]
  6. CIMETIDINE [Concomitant]
  7. LORAZEPAM [Concomitant]
  8. MORPHINE [Concomitant]
  9. OXYCODONE (OXYCODONE) [Concomitant]
  10. ZOLPIDEM TARTRATE [Concomitant]

REACTIONS (3)
  - DYSPHAGIA [None]
  - DYSPHONIA [None]
  - LOCAL SWELLING [None]
